FAERS Safety Report 6229905-6 (Version None)
Quarter: 2009Q2

REPORT INFORMATION
  Report Type: 
  Country: None (occurrence: None)
  Receive Date: 20090615
  Receipt Date: 20090320
  Transmission Date: 20091009
  Serious: Yes (Hospitalization, Other)
  Sender: FDA-Public Use
  Company Number: TR-ELI_LILLY_AND_COMPANY-TR200906002003

PATIENT
  Age: 61 Year
  Sex: Male

DRUGS (1)
  1. HUMALOG MIX 75/25 [Suspect]
     Indication: DIABETES MELLITUS
     Dosage: UNK UNK, DAILY (1/D)
     Route: 058
     Dates: start: 20070101

REACTIONS (2)
  - BLINDNESS [None]
  - INGROWING NAIL [None]
